FAERS Safety Report 15897765 (Version 1)
Quarter: 2019Q1

REPORT INFORMATION
  Report Type: Spontaneous
  Country: GB (occurrence: GB)
  Receive Date: 20190201
  Receipt Date: 20190201
  Transmission Date: 20190417
  Serious: Yes (Other)
  Sender: FDA-Public Use
  Company Number: GB-LUPIN PHARMACEUTICALS INC.-2018-08593

PATIENT
  Age: 13 Year
  Sex: Male

DRUGS (15)
  1. OSELTAMIVIR [Suspect]
     Active Substance: OSELTAMIVIR
     Dosage: 75 MG, SECOND DOSE
     Route: 045
  2. SALBUTAMOL [Concomitant]
     Active Substance: ALBUTEROL
     Indication: DYSPNOEA
     Dosage: UNK
     Route: 065
  3. KETAMINE [Concomitant]
     Active Substance: KETAMINE
     Indication: ENDOTRACHEAL INTUBATION
     Dosage: UNK
     Route: 065
  4. IPRATROPIUM [Concomitant]
     Active Substance: IPRATROPIUM
     Indication: DYSPNOEA
     Dosage: UNK
     Route: 065
  5. HYDROCORTISONE. [Concomitant]
     Active Substance: HYDROCORTISONE
     Indication: DYSPNOEA
     Dosage: UNK
     Route: 065
  6. FENTANYL. [Concomitant]
     Active Substance: FENTANYL
     Indication: ENDOTRACHEAL INTUBATION
     Dosage: UNK
     Route: 065
  7. VECURONIUM [Concomitant]
     Active Substance: VECURONIUM BROMIDE
     Indication: SEDATION
     Dosage: UNK
     Route: 065
  8. MAGNESIUM [Concomitant]
     Active Substance: MAGNESIUM
     Indication: DYSPNOEA
     Dosage: UNK
     Route: 065
  9. ROCURONIUM [Concomitant]
     Active Substance: ROCURONIUM BROMIDE
     Indication: ENDOTRACHEAL INTUBATION
     Dosage: UNK
     Route: 065
  10. PROPOFOL. [Concomitant]
     Active Substance: PROPOFOL
     Indication: SEDATION
     Dosage: UNK
     Route: 065
  11. ALFENTANIL. [Concomitant]
     Active Substance: ALFENTANIL
     Indication: SEDATION
     Dosage: UNK
     Route: 065
  12. CO-AMOXICLAV [Concomitant]
     Active Substance: AMOXICILLIN\CLAVULANATE POTASSIUM
     Indication: LOWER RESPIRATORY TRACT INFECTION
     Dosage: UNK
     Route: 065
  13. AZITHROMYCIN ANHYDROUS. [Concomitant]
     Active Substance: AZITHROMYCIN ANHYDROUS
     Indication: LOWER RESPIRATORY TRACT INFECTION
     Dosage: UNK
     Route: 048
  14. OSELTAMIVIR [Suspect]
     Active Substance: OSELTAMIVIR
     Indication: LOWER RESPIRATORY TRACT INFECTION
     Dosage: 75 MG, FIRST DOSE
     Route: 045
  15. AZITHROMYCIN ANHYDROUS. [Concomitant]
     Active Substance: AZITHROMYCIN ANHYDROUS
     Indication: WHEEZING

REACTIONS (1)
  - Anaphylactic reaction [Unknown]
